FAERS Safety Report 7373326-X (Version None)
Quarter: 2011Q1

REPORT INFORMATION
  Report Type: 
  Country: None (occurrence: None)
  Receive Date: 20110324
  Receipt Date: 20110311
  Transmission Date: 20110831
  Serious: Yes (Other)
  Sender: FDA-Public Use
  Company Number: CA-GENENTECH-307166

PATIENT
  Sex: Female

DRUGS (1)
  1. XOLAIR [Suspect]
     Indication: ASTHMA
     Dosage: 300 MG, 1/MONTH
     Route: 058
     Dates: start: 20090330

REACTIONS (6)
  - NASOPHARYNGITIS [None]
  - COUGH [None]
  - DYSPHONIA [None]
  - ATELECTASIS [None]
  - BRONCHITIS [None]
  - PRODUCTIVE COUGH [None]
